FAERS Safety Report 7814447-4 (Version None)
Quarter: 2011Q4

REPORT INFORMATION
  Report Type: 
  Country: None (occurrence: None)
  Receive Date: 20111014
  Receipt Date: 20110930
  Transmission Date: 20120403
  Serious: Yes (Hospitalization)
  Sender: FDA-Public Use
  Company Number: US-ELI_LILLY_AND_COMPANY-US201110000613

PATIENT
  Age: 65 Year
  Sex: Male

DRUGS (1)
  1. PROZAC [Suspect]
     Dosage: UNK, UNKNOWN

REACTIONS (1)
  - CARDIAC DISORDER [None]
